FAERS Safety Report 18633703 (Version 1)
Quarter: 2020Q4

REPORT INFORMATION
  Report Type: Report from Study
  Country: None (occurrence: CO)
  Receive Date: 20201218
  Receipt Date: 20201218
  Transmission Date: 20210114
  Serious: Yes (Other)
  Sender: FDA-Public Use
  Company Number: CO-ABBVIE-20K-036-3694339-00

PATIENT
  Age: 41 Year
  Sex: Female

DRUGS (2)
  1. ZEMPLAR [Suspect]
     Active Substance: PARICALCITOL
     Indication: CHRONIC KIDNEY DISEASE
  2. ZEMPLAR [Suspect]
     Active Substance: PARICALCITOL
     Indication: HYPERPARATHYROIDISM SECONDARY
     Route: 042
     Dates: start: 20190314

REACTIONS (7)
  - Localised infection [Recovering/Resolving]
  - Neuropathy peripheral [Unknown]
  - Thirst [Recovering/Resolving]
  - Skin laceration [Recovering/Resolving]
  - Feeling hot [Recovering/Resolving]
  - Mobility decreased [Recovering/Resolving]
  - Fistula [Recovering/Resolving]

NARRATIVE: CASE EVENT DATE: 202001
